FAERS Safety Report 4307462-9 (Version None)
Quarter: 2004Q1

REPORT INFORMATION
  Report Type: 
  Country: None (occurrence: None)
  Receive Date: 20040226
  Receipt Date: 20040212
  Transmission Date: 20041129
  Serious: Yes (Death, Hospitalization, Other)
  Sender: FDA-Public Use
  Company Number: 2004009792

PATIENT
  Age: 81 Year
  Sex: Female

DRUGS (4)
  1. NEURONTIN [Suspect]
     Indication: PROPHYLAXIS
     Dosage: 800 MG BID, ORAL
     Route: 048
     Dates: start: 20030205, end: 20031204
  2. AMIODARONE HCL [Concomitant]
  3. ACETYLSALICYLIC ACID SRT [Concomitant]
  4. HYDROCORTISONE [Concomitant]

REACTIONS (9)
  - ADRENAL INSUFFICIENCY [None]
  - BLOOD CORTICOTROPHIN DECREASED [None]
  - BLOOD CORTISOL DECREASED [None]
  - BRADYCARDIA [None]
  - DEPRESSED LEVEL OF CONSCIOUSNESS [None]
  - ELECTROCARDIOGRAM QRS COMPLEX PROLONGED [None]
  - HYPERTONIA [None]
  - HYPOTHERMIA [None]
  - MYOCLONUS [None]
